FAERS Safety Report 8186677-6 (Version None)
Quarter: 2012Q1

REPORT INFORMATION
  Report Type: 
  Country: None (occurrence: None)
  Receive Date: 20120305
  Receipt Date: 20120305
  Transmission Date: 20120608
  Serious: No
  Sender: FDA-Public Use
  Company Number: None

PATIENT
  Sex: Male
  Weight: 82.5547 kg

DRUGS (2)
  1. APOKYN 10MG/ML US WORLMEDS [Suspect]
     Indication: PARKINSON'S DISEASE
     Dosage: 0.26ML PER DOSE 3 DOSES DAY SUBCUTANEOUS
     Route: 058
     Dates: start: 20110818, end: 20120301
  2. SEROQUEL XR [Concomitant]

REACTIONS (1)
  - CONFUSIONAL STATE [None]
